FAERS Safety Report 9427156 (Version 1)
Quarter: 2013Q3

REPORT INFORMATION
  Report Type: Spontaneous
  Country: US (occurrence: None)
  Receive Date: 20130729
  Receipt Date: 20130729
  Transmission Date: 20140515
  Serious: Yes (Disabling, Other)
  Sender: FDA-Public Use
  Company Number: None

PATIENT
  Age: 72 Year
  Sex: Female
  Weight: 67.13 kg

DRUGS (12)
  1. ATORVASTATIN CALCIUM [Suspect]
     Indication: LOW DENSITY LIPOPROTEIN INCREASED
     Route: 048
     Dates: start: 201204, end: 20130402
  2. LEVOTHYROXIN TABS 75MG [Concomitant]
  3. LISINOPRIL TABS 5MG [Concomitant]
  4. TORSEMIDE TAB 10MG [Concomitant]
  5. OMEPRAZOLE 20MG TWICE DAILY [Concomitant]
  6. MELOXICAM 15MG [Concomitant]
  7. PROPOFENONE HCL 150MG [Concomitant]
  8. MUCINEX 600MG [Concomitant]
  9. FEXOFENADINE 180MG [Concomitant]
  10. ASA 81MG [Concomitant]
  11. L-LYSINE 500MG [Concomitant]
  12. VITAMIN D3 2000IU [Concomitant]

REACTIONS (1)
  - Contusion [None]
